FAERS Safety Report 20326938 (Version 1)
Quarter: 2022Q1

REPORT INFORMATION
  Report Type: Spontaneous
  Country: US (occurrence: None)
  Receive Date: 20220111
  Receipt Date: 20220111
  Transmission Date: 20220424
  Serious: Yes (Other)
  Sender: FDA-Public Use
  Company Number: None

PATIENT
  Age: 58 Year
  Sex: Female
  Weight: 57.61 kg

DRUGS (1)
  1. EVENITY [Suspect]
     Active Substance: ROMOSOZUMAB-AQQG
     Indication: Osteogenesis imperfecta
     Dosage: FREQUENCY : ONCE;?
     Route: 058
     Dates: start: 20211110, end: 20211110

REACTIONS (10)
  - Pyrexia [None]
  - Diarrhoea [None]
  - Decreased appetite [None]
  - Dyspepsia [None]
  - Nausea [None]
  - Headache [None]
  - Pain [None]
  - Asthenia [None]
  - Weight decreased [None]
  - Faeces discoloured [None]

NARRATIVE: CASE EVENT DATE: 20211110
